FAERS Safety Report 8096660-7 (Version None)
Quarter: 2012Q1

REPORT INFORMATION
  Report Type: 
  Country: None (occurrence: None)
  Receive Date: 20120129
  Receipt Date: 20111201
  Transmission Date: 20120608
  Serious: No
  Sender: FDA-Public Use
  Company Number: US-ABBOTT-11P-163-0880268-00

PATIENT
  Age: 51 Year
  Sex: Female

DRUGS (4)
  1. HYDROXYZINE HCT [Concomitant]
     Indication: PRURITUS
  2. HYDROXYZINE HCT [Concomitant]
     Indication: TENSION
  3. HUMIRA [Suspect]
     Indication: RHEUMATOID ARTHRITIS
     Dates: start: 20110907
  4. TRAMADOL HCL [Concomitant]
     Indication: PAIN

REACTIONS (2)
  - ABDOMINAL PAIN UPPER [None]
  - DIARRHOEA [None]
